FAERS Safety Report 25829410 (Version 2)
Quarter: 2025Q4

REPORT INFORMATION
  Report Type: Report from Study
  Country: US (occurrence: US)
  Receive Date: 20250922
  Receipt Date: 20251229
  Transmission Date: 20260118
  Serious: Yes (Hospitalization, Other)
  Sender: TAKEDA
  Company Number: US-TAKEDA-2025TUS073972

PATIENT
  Age: 9 Year
  Sex: Male
  Weight: 24 kg

DRUGS (11)
  1. TEDUGLUTIDE [Suspect]
     Active Substance: TEDUGLUTIDE
     Indication: Functional gastrointestinal disorder
     Dosage: UNK UNK, QD
     Dates: start: 20250511, end: 20250731
  2. TEDUGLUTIDE [Suspect]
     Active Substance: TEDUGLUTIDE
     Indication: Short-bowel syndrome
     Dosage: UNK, UNK, QD
     Dates: start: 20250517, end: 20250801
  3. TEDUGLUTIDE [Suspect]
     Active Substance: TEDUGLUTIDE
  4. TEDUGLUTIDE [Suspect]
     Active Substance: TEDUGLUTIDE
  5. PERIACTIN [Concomitant]
     Active Substance: CYPROHEPTADINE HYDROCHLORIDE
     Indication: Gastrointestinal disorder
     Dosage: 2.4 MILLIGRAM, QD
     Dates: start: 2022
  6. GABAPENTIN [Concomitant]
     Active Substance: GABAPENTIN
     Indication: Intestinal pseudo-obstruction
     Dosage: 200 MILLIGRAM, BID
     Dates: start: 2022, end: 20250815
  7. XIFAXAN [Concomitant]
     Active Substance: RIFAXIMIN
     Indication: Gastrointestinal microorganism overgrowth
     Dosage: 225 MILLIGRAM, BID
     Dates: start: 2022
  8. FLAGYL [Concomitant]
     Active Substance: METRONIDAZOLE\METRONIDAZOLE HYDROCHLORIDE
     Indication: Gastrointestinal microorganism overgrowth
     Dosage: 250 MILLIGRAM, BID
  9. MOTEGRITY [Concomitant]
     Active Substance: PRUCALOPRIDE SUCCINATE
     Indication: Gastrointestinal motility disorder
     Dosage: 1 MILLIGRAM, QD
     Dates: start: 2022
  10. PYRIDOSTIGMINE [Concomitant]
     Active Substance: PYRIDOSTIGMINE
     Dosage: 10 MILLIGRAM, TID
     Dates: start: 202406, end: 20250529
  11. CYPROHEPTADINE [Concomitant]
     Active Substance: CYPROHEPTADINE
     Dosage: 1.2 MILLIGRAM, Q1HR
     Dates: start: 2022, end: 202509

REACTIONS (11)
  - Gastrointestinal inflammation [Recovering/Resolving]
  - Haematochezia [Unknown]
  - Intestinal pseudo-obstruction [Recovered/Resolved]
  - Ileal ulcer [Recovered/Resolved]
  - Hypophagia [Unknown]
  - Enteritis [Recovered/Resolved]
  - Gastric dilatation [Recovered/Resolved]
  - Infrequent bowel movements [Unknown]
  - Cholelithiasis [Unknown]
  - Nausea [Unknown]
  - Abdominal pain [Unknown]

NARRATIVE: CASE EVENT DATE: 20250716
